FAERS Safety Report 4571177-2 (Version None)
Quarter: 2005Q1

REPORT INFORMATION
  Report Type: 
  Country: None (occurrence: None)
  Receive Date: 20050202
  Receipt Date: 20050117
  Transmission Date: 20050727
  Serious: Yes (Life-Threatening)
  Sender: FDA-Public Use
  Company Number: JP_050105650

PATIENT
  Age: 74 Year
  Sex: Female

DRUGS (4)
  1. VINBLASTINE SULFATE [Suspect]
     Indication: HODGKIN'S DISEASE
     Dosage: 9 MG OTHER
     Route: 050
     Dates: start: 20040827, end: 20041227
  2. BLEOMYCIN [Concomitant]
  3. ADRIACIN (DOXORUBICIN HYDROCHLORIDE) [Concomitant]
  4. DACARBAZINE [Concomitant]

REACTIONS (1)
  - PNEUMONITIS [None]
